FAERS Safety Report 26168418 (Version 1)
Quarter: 2025Q4

REPORT INFORMATION
  Report Type: Spontaneous
  Country: US (occurrence: US)
  Receive Date: 20251217
  Receipt Date: 20251217
  Transmission Date: 20260118
  Serious: No
  Sender: ABBVIE
  Company Number: US-ABBVIE-6589555

PATIENT
  Age: 81 Year

DRUGS (1)
  1. ELAHERE [Suspect]
     Active Substance: MIRVETUXIMAB SORAVTANSINE-GYNX
     Indication: Ovarian cancer
     Dosage: FORM STRENGTH: 200 MILLIGRAM?ELAHERE 5 MG/ML INJECTION
     Route: 042
     Dates: start: 202506

REACTIONS (2)
  - Adverse event [Unknown]
  - Product preparation error [Not Recovered/Not Resolved]

NARRATIVE: CASE EVENT DATE: 20250101
